FAERS Safety Report 7264080-0 (Version None)
Quarter: 2011Q1

REPORT INFORMATION
  Report Type: 
  Country: None (occurrence: None)
  Receive Date: 20110130
  Receipt Date: 20101229
  Transmission Date: 20110831
  Serious: No
  Sender: FDA-Public Use
  Company Number: US-ABBOTT-11P-163-0694710-00

PATIENT
  Sex: Female
  Weight: 76.272 kg

DRUGS (7)
  1. HUMIRA [Suspect]
     Indication: PSORIASIS
     Dates: start: 20101117, end: 20101117
  2. PREVACID [Concomitant]
     Indication: DYSPEPSIA
  3. ATIVAN [Concomitant]
     Indication: ANXIETY
  4. HYDROCHLOROTHIAZIDE [Concomitant]
     Indication: HYPERTENSION
  5. HUMIRA [Suspect]
     Dates: start: 20101101
  6. LISINOPRIL [Concomitant]
     Indication: HYPERTENSION
  7. LORAZEPAM [Concomitant]
     Indication: ANXIETY

REACTIONS (1)
  - DIZZINESS [None]
